FAERS Safety Report 17439858 (Version 2)
Quarter: 2020Q1

REPORT INFORMATION
  Report Type: Other
  Country: FR (occurrence: FR)
  Receive Date: 20200220
  Receipt Date: 20200304
  Transmission Date: 20200409
  Serious: Yes (Death, Hospitalization, Other)
  Sender: FDA-Public Use
  Company Number: FR-CELLTRION INC.-2020FR019530

PATIENT

DRUGS (21)
  1. VENCLYXTO [Suspect]
     Active Substance: VENETOCLAX
     Dosage: 20 MG, DAILY
     Route: 048
     Dates: start: 20190518, end: 20190523
  2. VENCLYXTO [Suspect]
     Active Substance: VENETOCLAX
     Dosage: 50 MG, DAILY
     Route: 048
     Dates: start: 20190524, end: 20190605
  3. MOPRAL [OMEPRAZOLE] [Concomitant]
     Active Substance: OMEPRAZOLE
     Indication: PRODUCT USED FOR UNKNOWN INDICATION
  4. LEVOTHYROX [Concomitant]
     Active Substance: LEVOTHYROXINE
     Indication: PRODUCT USED FOR UNKNOWN INDICATION
  5. ZELITREX [Concomitant]
     Active Substance: VALACYCLOVIR HYDROCHLORIDE
     Indication: PRODUCT USED FOR UNKNOWN INDICATION
  6. VENCLYXTO [Suspect]
     Active Substance: VENETOCLAX
     Dosage: 100 MG, DAILY
     Route: 048
     Dates: start: 20190606
  7. FASTURTEC [Suspect]
     Active Substance: RASBURICASE
     Dosage: 100 MG
     Route: 042
  8. VENCLYXTO [Suspect]
     Active Substance: VENETOCLAX
     Dosage: 50 MG, DAILY
     Route: 048
     Dates: start: 20190524, end: 20190605
  9. FASTURTEC [Suspect]
     Active Substance: RASBURICASE
     Dosage: 50 MG
     Route: 042
  10. FASTURTEC [Suspect]
     Active Substance: RASBURICASE
     Dosage: 50 MG
     Route: 042
  11. GAVISCON [ALGINIC ACID;ALUMINIUM HYDROXIDE GEL, DRIED;MAGNESIUM TRISIL [Concomitant]
     Active Substance: ALGINIC ACID\ALUMINUM HYDROXIDE\MAGNESIUM TRISILICATE
     Indication: PRODUCT USED FOR UNKNOWN INDICATION
  12. BARACLUDE [Concomitant]
     Active Substance: ENTECAVIR
     Indication: PRODUCT USED FOR UNKNOWN INDICATION
  13. FASTURTEC [Suspect]
     Active Substance: RASBURICASE
     Indication: PRODUCT USED FOR UNKNOWN INDICATION
     Dosage: 100 MG
     Route: 042
  14. VENCLYXTO [Suspect]
     Active Substance: VENETOCLAX
     Dosage: 20 MG, DAILY
     Route: 048
     Dates: start: 20190518, end: 20190523
  15. VENCLYXTO [Suspect]
     Active Substance: VENETOCLAX
     Dosage: 50 MG, DAILY
     Route: 048
     Dates: start: 20190524, end: 20190605
  16. VENCLYXTO [Suspect]
     Active Substance: VENETOCLAX
     Dosage: 100 MG, DAILY
     Route: 048
     Dates: start: 20190606
  17. VENCLYXTO [Suspect]
     Active Substance: VENETOCLAX
     Indication: CHRONIC LYMPHOCYTIC LEUKAEMIA
     Dosage: 20 MG, DAILY
     Route: 048
     Dates: start: 20190518, end: 20190523
  18. VENCLYXTO [Suspect]
     Active Substance: VENETOCLAX
     Dosage: 100 MG, DAILY
     Route: 048
     Dates: start: 20190606
  19. RITUXIMAB (UNKNOWN) [Suspect]
     Active Substance: RITUXIMAB
     Indication: CHRONIC LYMPHOCYTIC LEUKAEMIA
     Dosage: UNK
     Route: 065
     Dates: start: 20190615
  20. BACTRIM [Concomitant]
     Active Substance: SULFAMETHOXAZOLE\TRIMETHOPRIM
     Indication: PRODUCT USED FOR UNKNOWN INDICATION
  21. FEMARA [Concomitant]
     Active Substance: LETROZOLE
     Indication: PRODUCT USED FOR UNKNOWN INDICATION

REACTIONS (17)
  - Tumour lysis syndrome [Fatal]
  - Hyperkalaemia [Fatal]
  - Cardiac arrest [Fatal]
  - Hyperuricaemia [Fatal]
  - Nausea [Fatal]
  - Pallor [Fatal]
  - Mydriasis [Fatal]
  - Neutropenia [Fatal]
  - Carotid pulse decreased [Fatal]
  - Femoral pulse decreased [Fatal]
  - Malaise [Fatal]
  - Blood lactate dehydrogenase increased [Fatal]
  - Disseminated intravascular coagulation [Fatal]
  - Chronic lymphocytic leukaemia [Fatal]
  - Lymphadenopathy [Fatal]
  - Vomiting [Fatal]
  - Hyperhidrosis [Fatal]

NARRATIVE: CASE EVENT DATE: 2019
